FAERS Safety Report 15858878 (Version 3)
Quarter: 2019Q2

REPORT INFORMATION
  Report Type: Spontaneous
  Country: AR (occurrence: AR)
  Receive Date: 20190123
  Receipt Date: 20190625
  Transmission Date: 20190711
  Serious: Yes (Hospitalization, Other)
  Sender: FDA-Public Use
  Company Number: AR-GLAXOSMITHKLINE-AR2019GSK009991

PATIENT
  Sex: Female

DRUGS (1)
  1. NUCALA [Suspect]
     Active Substance: MEPOLIZUMAB
     Indication: ASTHMA
     Dosage: UNK
     Dates: start: 201803

REACTIONS (6)
  - Pneumonia [Recovering/Resolving]
  - Asthmatic crisis [Unknown]
  - Lung disorder [Unknown]
  - Respiratory disorder [Recovering/Resolving]
  - Blood glucose increased [Unknown]
  - Diabetes mellitus [Unknown]
